FAERS Safety Report 11897911 (Version 1)
Quarter: 2016Q1

REPORT INFORMATION
  Report Type: Spontaneous
  Country: US (occurrence: None)
  Receive Date: 20160107
  Receipt Date: 20160107
  Transmission Date: 20160526
  Serious: Yes (Life-Threatening, Hospitalization, Disabling)
  Sender: FDA-Public Use
  Company Number: None

PATIENT
  Age: 58 Year
  Sex: Male
  Weight: 136.08 kg

DRUGS (8)
  1. VENLAFAXINE HCL [Suspect]
     Active Substance: VENLAFAXINE HYDROCHLORIDE
     Indication: DEPRESSION
     Dosage: VENLAFAXINE 150 AM 75 PM TWICE DAILY
     Route: 048
  2. LISINOPRIL. [Concomitant]
     Active Substance: LISINOPRIL
  3. ABILIFY [Concomitant]
     Active Substance: ARIPIPRAZOLE
  4. ATORVASTATIN [Concomitant]
     Active Substance: ATORVASTATIN
  5. ZYVOX [Suspect]
     Active Substance: LINEZOLID
     Indication: INFECTION
     Route: 048
     Dates: start: 20151205, end: 20151206
  6. ATENELO [Concomitant]
  7. WELLBUTERINE [Concomitant]
  8. AMOLDIPINE [Concomitant]

REACTIONS (2)
  - Drug interaction [None]
  - Cerebrovascular accident [None]

NARRATIVE: CASE EVENT DATE: 20151206
